FAERS Safety Report 7625385-4 (Version None)
Quarter: 2011Q3

REPORT INFORMATION
  Report Type: 
  Country: None (occurrence: None)
  Receive Date: 20110721
  Receipt Date: 20110708
  Transmission Date: 20111222
  Serious: Yes (Congenital Anomaly)
  Sender: FDA-Public Use
  Company Number: FR-UCBSA-022159

PATIENT
  Sex: Male
  Weight: 2.68 kg

DRUGS (6)
  1. DONORMYL [Suspect]
     Indication: POISONING DELIBERATE
     Route: 064
     Dates: start: 20100522, end: 20100522
  2. URBANYL [Suspect]
     Indication: EPILEPSY
     Route: 064
     Dates: end: 20100501
  3. KEPPRA [Suspect]
     Route: 064
     Dates: start: 20100101
  4. DEPAKENE [Suspect]
     Indication: EPILEPSY
     Route: 064
     Dates: end: 20100501
  5. CIPROFLOXACIN HCL [Concomitant]
     Indication: POISONING DELIBERATE
     Dosage: 2 UNITS
     Route: 064
     Dates: start: 20100522, end: 20100522
  6. KEPPRA [Suspect]
     Indication: EPILEPSY
     Route: 064
     Dates: end: 20100501

REACTIONS (4)
  - ECHOGRAPHY ABNORMAL [None]
  - MATERNAL EXPOSURE DURING PREGNANCY [None]
  - HEARING IMPAIRED [None]
  - EXTERNAL AUDITORY CANAL ATRESIA [None]
